FAERS Safety Report 21171528 (Version 5)
Quarter: 2023Q4

REPORT INFORMATION
  Report Type: Report from Study
  Country: US (occurrence: US)
  Receive Date: 20220804
  Receipt Date: 20231024
  Transmission Date: 20240110
  Serious: Yes (Hospitalization, Other)
  Sender: FDA-Public Use
  Company Number: US-ARGENX-2022-ARGX-US001390

PATIENT

DRUGS (1)
  1. VYVGART [Suspect]
     Active Substance: EFGARTIGIMOD ALFA-FCAB
     Indication: Myasthenia gravis
     Dosage: UNK
     Route: 042

REACTIONS (17)
  - Arteriovenous fistula occlusion [Unknown]
  - Chronic kidney disease [Unknown]
  - Muscular weakness [Unknown]
  - Hospitalisation [Unknown]
  - Immunodeficiency [Unknown]
  - Herpes zoster [Recovered/Resolved]
  - Arthritis bacterial [Not Recovered/Not Resolved]
  - Fungal infection [Unknown]
  - Urinary tract infection [Recovered/Resolved]
  - Urinary tract infection [Unknown]
  - Gout [Recovered/Resolved]
  - Dysuria [Unknown]
  - Tremor [Unknown]
  - Rotator cuff syndrome [Unknown]
  - Salivary gland calculus [Unknown]
  - Asthenia [Unknown]
  - Fatigue [Unknown]

NARRATIVE: CASE EVENT DATE: 20230710
